FAERS Safety Report 18365393 (Version 2)
Quarter: 2021Q4

REPORT INFORMATION
  Report Type: Spontaneous
  Country: US (occurrence: US)
  Receive Date: 20201009
  Receipt Date: 20211118
  Transmission Date: 20220304
  Serious: Yes (Other)
  Sender: FDA-Public Use
  Company Number: US-BAYER-2020-218198

PATIENT
  Age: 28 Year
  Sex: Female
  Weight: 260 kg

DRUGS (1)
  1. MIRENA [Suspect]
     Active Substance: LEVONORGESTREL
     Indication: Contraception
     Dosage: 20?G/DAY
     Route: 015
     Dates: start: 2017, end: 20201006

REACTIONS (4)
  - Pregnancy with contraceptive device [Not Recovered/Not Resolved]
  - Abortion spontaneous [None]
  - Drug ineffective [None]
  - Device placement issue [Recovered/Resolved]

NARRATIVE: CASE EVENT DATE: 20200915
